FAERS Safety Report 11202918 (Version 1)
Quarter: 2015Q2

REPORT INFORMATION
  Report Type: Spontaneous
  Country: US (occurrence: US)
  Receive Date: 20150619
  Receipt Date: 20150619
  Transmission Date: 20150821
  Serious: No
  Sender: FDA-Public Use
  Company Number: US-ELI_LILLY_AND_COMPANY-US201505008892

PATIENT
  Age: 60 Year
  Sex: Female

DRUGS (5)
  1. STRATTERA [Suspect]
     Active Substance: ATOMOXETINE HYDROCHLORIDE
     Indication: ATTENTION DEFICIT/HYPERACTIVITY DISORDER
     Dosage: 25 MG, QD
     Route: 065
     Dates: start: 20150521, end: 20150521
  2. SYNTHROID [Concomitant]
     Active Substance: LEVOTHYROXINE SODIUM
  3. OXYBUTIN [Concomitant]
     Active Substance: OXYBUTYNIN
  4. WELLBUTRIN [Concomitant]
     Active Substance: BUPROPION HYDROCHLORIDE
  5. ALBUTEROL                          /00139501/ [Concomitant]
     Active Substance: ALBUTEROL
     Dosage: UNK, PRN

REACTIONS (6)
  - Paraesthesia [Recovered/Resolved]
  - Rhinorrhoea [Recovered/Resolved]
  - Piloerection [Recovered/Resolved]
  - Fatigue [Recovered/Resolved]
  - Dysphagia [Not Recovered/Not Resolved]
  - Headache [Recovered/Resolved]
